FAERS Safety Report 16232946 (Version 1)
Quarter: 2019Q2

REPORT INFORMATION
  Report Type: Spontaneous
  Country: US (occurrence: US)
  Receive Date: 20190424
  Receipt Date: 20190424
  Transmission Date: 20190711
  Serious: No
  Sender: FDA-Public Use
  Company Number: US-PFIZER INC-2019169180

PATIENT
  Age: 12 Year
  Sex: Female

DRUGS (2)
  1. GENOTROPIN [Suspect]
     Active Substance: SOMATROPIN
     Dosage: 1.6 MG, UNK
     Dates: start: 201804
  2. GENOTROPIN [Suspect]
     Active Substance: SOMATROPIN
     Dosage: AFTER OUR 6 MONTH VISIT SHE JUMPED IT UP TO 1.8

REACTIONS (2)
  - Ear infection [Unknown]
  - Product dose omission [Unknown]
